FAERS Safety Report 12403623 (Version 2)
Quarter: 2017Q4

REPORT INFORMATION
  Report Type: Spontaneous
  Country: US (occurrence: US)
  Receive Date: 20160525
  Receipt Date: 20171208
  Transmission Date: 20180320
  Serious: No
  Sender: FDA-Public Use
  Company Number: US-JAZZ-2015-US-015197

PATIENT
  Sex: Female
  Weight: 45.35 kg

DRUGS (14)
  1. CEREFOLIN NAC [Concomitant]
     Indication: FOLATE DEFICIENCY
     Dosage: UNK
     Dates: start: 20150920
  2. XYREM [Suspect]
     Active Substance: SODIUM OXYBATE
     Dosage: DOSE ADJUSTMENTS
     Route: 048
  3. VITAMIN D [Suspect]
     Active Substance: CHOLECALCIFEROL
     Indication: VITAMIN D DECREASED
     Dosage: UNKNOWN DOSE
     Dates: start: 20150920
  4. CYTOMEL [Concomitant]
     Active Substance: LIOTHYRONINE SODIUM
     Indication: AUTOIMMUNE THYROIDITIS
     Dosage: UNK
     Dates: start: 20010101
  5. VALIUM [Concomitant]
     Active Substance: DIAZEPAM
     Indication: MUSCLE SPASMS
     Dosage: UNK
     Dates: start: 20150920
  6. VITAMIN D [Suspect]
     Active Substance: CHOLECALCIFEROL
     Dosage: DECREASED DOSE
  7. XYREM [Suspect]
     Active Substance: SODIUM OXYBATE
     Indication: NARCOLEPSY
     Dosage: 3 G, BID
     Route: 048
     Dates: start: 200810, end: 201010
  8. XYREM [Suspect]
     Active Substance: SODIUM OXYBATE
     Dosage: 3.75 G, BID
     Route: 048
     Dates: start: 201010
  9. VITAMIN D [Suspect]
     Active Substance: CHOLECALCIFEROL
     Dosage: INCREASED DOSE OF 25,000 OR 50,000 IU
  10. CEREFOLIN NAC [Concomitant]
     Indication: VITAMIN B12 DEFICIENCY
  11. MULTIVITAMIN [Concomitant]
     Active Substance: VITAMINS
     Indication: PRODUCT USED FOR UNKNOWN INDICATION
     Dosage: UNK
  12. TRAMADOL. [Concomitant]
     Active Substance: TRAMADOL
     Indication: FIBROMYALGIA
     Dosage: 100 MG QAM
     Dates: start: 20130301
  13. CLONAZEPAM. [Concomitant]
     Active Substance: CLONAZEPAM
     Indication: ANXIETY
     Dosage: 1 MG QAM
     Dates: start: 20010101
  14. SYNTHROID [Concomitant]
     Active Substance: LEVOTHYROXINE SODIUM
     Indication: AUTOIMMUNE THYROIDITIS
     Dosage: UNK
     Dates: start: 20010101

REACTIONS (6)
  - Muscle spasms [Unknown]
  - Therapeutic response unexpected [Unknown]
  - Balance disorder [Recovered/Resolved]
  - Abdominal pain upper [Recovered/Resolved]
  - Pre-existing condition improved [Unknown]
  - Headache [Recovered/Resolved]
